FAERS Safety Report 14712857 (Version 1)
Quarter: 2018Q2

REPORT INFORMATION
  Report Type: Spontaneous
  Country: US (occurrence: US)
  Receive Date: 20180404
  Receipt Date: 20180404
  Transmission Date: 20180711
  Serious: Yes (Other)
  Sender: FDA-Public Use
  Company Number: US-ALKEM LABORATORIES LIMITED-US-ALKEM-2018-00892

PATIENT
  Age: 26 Year
  Sex: Female

DRUGS (3)
  1. FENTANYL. [Concomitant]
     Active Substance: FENTANYL
     Indication: ANAESTHESIA PROCEDURE
     Dosage: 100 MCG, UNK
     Route: 042
  2. LIDOCAINE. [Suspect]
     Active Substance: LIDOCAINE
     Indication: ANAESTHESIA PROCEDURE
     Dosage: 2% LIDOCAINE FROM PARACERVICAL INJECTIONS, AT A DOSE OF 10 CC BY 4 (40 CC TOTAL)
     Route: 065
  3. PROPOFOL. [Concomitant]
     Active Substance: PROPOFOL
     Indication: ANAESTHESIA PROCEDURE
     Dosage: 120 MG, UNK
     Route: 042

REACTIONS (4)
  - Toxicity to various agents [Unknown]
  - Generalised tonic-clonic seizure [Recovered/Resolved]
  - Overdose [Unknown]
  - Incorrect dose administered [Unknown]
